FAERS Safety Report 10362167 (Version 2)
Quarter: 2014Q3

REPORT INFORMATION
  Report Type: Spontaneous
  Country: JP (occurrence: JP)
  Receive Date: 20140805
  Receipt Date: 20140805
  Transmission Date: 20150326
  Serious: Yes (Other)
  Sender: FDA-Public Use
  Company Number: JP-SA-2013-08264

PATIENT
  Age: 60 Year
  Sex: Male

DRUGS (4)
  1. BCG FOR IMMUNOTHERAPY [Suspect]
     Active Substance: BCG VACCINE
     Indication: BLADDER CANCER
     Route: 043
  2. BUCILLAMINE [Concomitant]
     Active Substance: BUCILLAMINE
     Indication: RHEUMATOID ARTHRITIS
     Route: 048
  3. SALAZOSULFAPYRIDINE [Concomitant]
     Active Substance: SULFASALAZINE
     Indication: RHEUMATOID ARTHRITIS
     Route: 048
  4. TACROLIMUS. [Concomitant]
     Active Substance: TACROLIMUS
     Indication: DIABETES MELLITUS
     Route: 048

REACTIONS (10)
  - Haematuria [Unknown]
  - Polyuria [Unknown]
  - Renal tuberculosis [Unknown]
  - Inflammation [Unknown]
  - Lymphadenopathy [Unknown]
  - Granuloma [Unknown]
  - Pain [Unknown]
  - Pyrexia [Unknown]
  - Renal mass [Unknown]
  - Nephritis [Unknown]
